FAERS Safety Report 7180760-X (Version None)
Quarter: 2010Q4

REPORT INFORMATION
  Report Type: 
  Country: None (occurrence: None)
  Receive Date: 20101221
  Receipt Date: 20101213
  Transmission Date: 20110411
  Serious: Yes (Other)
  Sender: FDA-Public Use
  Company Number: FR-GILEAD-2010-0033729

PATIENT
  Sex: Male
  Weight: 70 kg

DRUGS (10)
  1. TRUVADA [Suspect]
     Indication: HIV INFECTION
     Route: 048
     Dates: start: 20100901
  2. KALETRA [Concomitant]
     Indication: HIV INFECTION
     Dates: start: 20100901
  3. MALOCIDE [Concomitant]
     Indication: LUNG DISORDER
     Dates: start: 20100901
  4. MALOCIDE [Concomitant]
     Indication: HIV INFECTION
  5. DISULONE [Concomitant]
     Indication: LUNG DISORDER
     Dates: start: 20090101
  6. DISULONE [Concomitant]
     Indication: HIV INFECTION
  7. RULID [Concomitant]
     Indication: LUNG DISORDER
  8. LEDERFOLINE [Concomitant]
     Indication: LUNG DISORDER
     Dates: start: 20100901
  9. LEDERFOLINE [Concomitant]
     Indication: HIV INFECTION
  10. DEDROGYL [Concomitant]
     Indication: HIV INFECTION
     Dates: start: 20100901

REACTIONS (4)
  - GLYCOSURIA [None]
  - HYPERTRIGLYCERIDAEMIA [None]
  - HYPOPHOSPHATAEMIA [None]
  - RENAL FAILURE ACUTE [None]
